FAERS Safety Report 10379937 (Version 8)
Quarter: 2015Q2

REPORT INFORMATION
  Report Type: Report from Study
  Country: CA (occurrence: CA)
  Receive Date: 20140813
  Receipt Date: 20150519
  Transmission Date: 20150821
  Serious: Yes (Life-Threatening, Hospitalization, Other)
  Sender: FDA-Public Use
  Company Number: CA-ROCHE-1320867

PATIENT
  Age: 67 Year
  Sex: Male

DRUGS (5)
  1. METFORMIN [Concomitant]
     Active Substance: METFORMIN HYDROCHLORIDE
  2. ACTEMRA [Suspect]
     Active Substance: TOCILIZUMAB
     Route: 042
     Dates: start: 20130709
  3. ACTEMRA [Suspect]
     Active Substance: TOCILIZUMAB
     Indication: RHEUMATOID ARTHRITIS
     Route: 042
     Dates: start: 20130612
  4. CITRULLINE [Concomitant]
     Active Substance: CITRULLINE
  5. MIRTAZAPINE. [Concomitant]
     Active Substance: MIRTAZAPINE

REACTIONS (11)
  - Dyspnoea [Unknown]
  - Myocardial infarction [Unknown]
  - Somnolence [Unknown]
  - Chronic obstructive pulmonary disease [Unknown]
  - Fall [Unknown]
  - Infusion related reaction [Unknown]
  - Cardiac disorder [Unknown]
  - Infection [Unknown]
  - Hypertension [Unknown]
  - Herpes zoster [Unknown]
  - Pharyngitis [Unknown]

NARRATIVE: CASE EVENT DATE: 20150112
